FAERS Safety Report 4942629-8 (Version None)
Quarter: 2006Q1

REPORT INFORMATION
  Report Type: 
  Country: None (occurrence: None)
  Receive Date: 20060310
  Receipt Date: 20060301
  Transmission Date: 20060701
  Serious: Yes (Other)
  Sender: FDA-Public Use
  Company Number: 2006BI003473

PATIENT
  Age: 70 Year
  Sex: Male
  Weight: 106.5953 kg

DRUGS (4)
  1. AVONEX [Suspect]
     Indication: MULTIPLE SCLEROSIS
     Dosage: 30 UG; QW; IM
     Route: 030
     Dates: start: 20010101, end: 20030101
  2. AVONEX [Suspect]
     Indication: MULTIPLE SCLEROSIS
     Dosage: 30 UG; QW; IM
     Route: 030
     Dates: start: 20030101, end: 20060226
  3. VALIUM [Concomitant]
  4. TYLENOL W/ CODEINE [Concomitant]

REACTIONS (6)
  - CATARACT [None]
  - POOR PERIPHERAL CIRCULATION [None]
  - PROSTATE CANCER [None]
  - PRURITUS GENERALISED [None]
  - RASH GENERALISED [None]
  - URETERIC CANCER [None]
